FAERS Safety Report 18639795 (Version 1)
Quarter: 2020Q4

REPORT INFORMATION
  Report Type: Spontaneous
  Country: US (occurrence: US)
  Receive Date: 20201220
  Receipt Date: 20201220
  Transmission Date: 20210114
  Serious: Yes (Other)
  Sender: FDA-Public Use
  Company Number: US-ASTRAZENECA-2020SF69099

PATIENT
  Age: 60 Year
  Sex: Male

DRUGS (2)
  1. GAZYVA [Concomitant]
     Active Substance: OBINUTUZUMAB
     Dosage: 6 CYCLES
  2. CALQUENCE [Suspect]
     Active Substance: ACALABRUTINIB
     Indication: LYMPHOMA
     Route: 048

REACTIONS (1)
  - Pancytopenia [Recovered/Resolved]
